FAERS Safety Report 6669125-4 (Version None)
Quarter: 2010Q2

REPORT INFORMATION
  Report Type: 
  Country: None (occurrence: None)
  Receive Date: 20100402
  Receipt Date: 20100319
  Transmission Date: 20101027
  Serious: Yes (Other)
  Sender: FDA-Public Use
  Company Number: 231780J10USA

PATIENT
  Age: 55 Year
  Sex: Female

DRUGS (1)
  1. REBIF [Suspect]
     Indication: MULTIPLE SCLEROSIS
     Dosage: 44 MCG, 3 IN 1 WEEKS, SUBCUTANEOUS
     Route: 058
     Dates: start: 20030114

REACTIONS (5)
  - BIPOLAR DISORDER [None]
  - CRYING [None]
  - DEPRESSION [None]
  - EUPHORIC MOOD [None]
  - REPETITIVE SPEECH [None]
